FAERS Safety Report 8578635-4 (Version None)
Quarter: 2012Q3

REPORT INFORMATION
  Report Type: 
  Country: None (occurrence: None)
  Receive Date: 20120808
  Receipt Date: 20120731
  Transmission Date: 20120928
  Serious: Yes (Hospitalization)
  Sender: FDA-Public Use
  Company Number: FR-SANOFI-AVENTIS-2012SA054373

PATIENT
  Age: 57 Year
  Sex: Female

DRUGS (2)
  1. MABTHERA [Suspect]
     Route: 042
     Dates: start: 20080301, end: 20110429
  2. ARAVA [Suspect]
     Route: 048
     Dates: end: 20120401

REACTIONS (1)
  - OVARIAN CANCER [None]
